FAERS Safety Report 12119624 (Version 2)
Quarter: 2016Q1

REPORT INFORMATION
  Report Type: Spontaneous
  Country: NO (occurrence: NO)
  Receive Date: 20160226
  Receipt Date: 20160229
  Transmission Date: 20160526
  Serious: Yes (Other)
  Sender: FDA-Public Use
  Company Number: NO-JNJFOC-20160219614

PATIENT
  Age: 10 Year
  Sex: Male

DRUGS (2)
  1. CONCERTA [Suspect]
     Active Substance: METHYLPHENIDATE HYDROCHLORIDE
     Indication: HYPERKINESIA
     Route: 048
     Dates: start: 20150210, end: 20160127
  2. METHYLPHENIDATE. [Suspect]
     Active Substance: METHYLPHENIDATE
     Indication: HYPERKINESIA
     Dosage: DOSE AT 15:00, WHEN NECCESSARY
     Route: 048
     Dates: start: 20150210, end: 20160127

REACTIONS (3)
  - Thrombocytopenia [Unknown]
  - Leukopenia [Recovering/Resolving]
  - Blood creatinine increased [Recovering/Resolving]

NARRATIVE: CASE EVENT DATE: 201601
